FAERS Safety Report 10456642 (Version 5)
Quarter: 2014Q4

REPORT INFORMATION
  Report Type: Report from Study
  Country: CA (occurrence: CA)
  Receive Date: 20140916
  Receipt Date: 20141125
  Transmission Date: 20150528
  Serious: Yes (Death, Hospitalization, Other)
  Sender: FDA-Public Use
  Company Number: PHHY2014CA075448

PATIENT
  Age: 60 Year
  Sex: Female

DRUGS (5)
  1. SANDOSTATIN [Suspect]
     Active Substance: OCTREOTIDE ACETATE
     Indication: OVARIAN CANCER METASTATIC
     Dosage: UNK UNK, ONCE/SINGLE (TEST DOSE)
     Route: 058
     Dates: start: 20140506, end: 20140506
  2. DECADRON [Suspect]
     Active Substance: DEXAMETHASONE
     Indication: PAIN
     Dosage: UNK UKN, UNK
     Route: 065
  3. SANDOSTATIN LAR DEPOT [Suspect]
     Active Substance: OCTREOTIDE ACETATE
     Indication: OVARIAN CANCER METASTATIC
     Dosage: 20 MG, EVERY 4 WEEKS
     Route: 030
     Dates: start: 20140514, end: 20141029
  4. SANDOSTATIN LAR DEPOT [Suspect]
     Active Substance: OCTREOTIDE ACETATE
     Indication: OFF LABEL USE
  5. SANDOSTATIN [Suspect]
     Active Substance: OCTREOTIDE ACETATE
     Indication: OFF LABEL USE

REACTIONS (15)
  - Intestinal obstruction [Unknown]
  - Death [Fatal]
  - Rectal haemorrhage [Unknown]
  - Type 2 diabetes mellitus [Unknown]
  - Vaginal haemorrhage [Unknown]
  - Gastrointestinal motility disorder [Unknown]
  - Asthenia [Unknown]
  - Renal impairment [Unknown]
  - Blood pressure systolic increased [Unknown]
  - Faeces hard [Unknown]
  - Fatigue [Unknown]
  - Angina pectoris [Unknown]
  - Malignant neoplasm progression [Unknown]
  - Back pain [Unknown]
  - Abdominal pain [Unknown]

NARRATIVE: CASE EVENT DATE: 201406
